FAERS Safety Report 7539728-3 (Version None)
Quarter: 2011Q2

REPORT INFORMATION
  Report Type: 
  Country: None (occurrence: None)
  Receive Date: 20110609
  Receipt Date: 20110609
  Transmission Date: 20111010
  Serious: Yes (Hospitalization)
  Sender: FDA-Public Use
  Company Number: None

PATIENT
  Sex: Male
  Weight: 56.4 kg

DRUGS (4)
  1. AVASTIN [Suspect]
     Dosage: 900MG
     Dates: end: 20110516
  2. IRINOTECAN HCL [Suspect]
     Dosage: 864MG
     Dates: end: 20110531
  3. LEUCOVORIN CALCIUM [Suspect]
     Dosage: 1920 MG
     Dates: end: 20110531
  4. FLUOROURACIL [Suspect]
     Dosage: 13488MG
     Dates: end: 20110531

REACTIONS (5)
  - DYSPNOEA [None]
  - HEADACHE [None]
  - PULMONARY EMBOLISM [None]
  - NAUSEA [None]
  - ABDOMINAL PAIN [None]
